FAERS Safety Report 15417004 (Version 2)
Quarter: 2018Q3

REPORT INFORMATION
  Report Type: Spontaneous
  Country: JP (occurrence: JP)
  Receive Date: 20180924
  Receipt Date: 20180928
  Transmission Date: 20181010
  Serious: Yes (Other)
  Sender: FDA-Public Use
  Company Number: JP-TEVA-2018-JP-955279

PATIENT
  Age: 8 Decade
  Sex: Female

DRUGS (4)
  1. BENDAMUSTINE HYDROCHLORIDE. [Suspect]
     Active Substance: BENDAMUSTINE HYDROCHLORIDE
     Indication: B-CELL LYMPHOMA
     Dosage: 90 MG/M2, CYCLIC (FIRST CYCLE)
     Route: 042
     Dates: start: 20180322, end: 20180323
  2. RITUXIMAB. [Suspect]
     Active Substance: RITUXIMAB
     Indication: B-CELL LYMPHOMA
     Route: 041
     Dates: start: 20180322
  3. BENDAMUSTINE HYDROCHLORIDE. [Suspect]
     Active Substance: BENDAMUSTINE HYDROCHLORIDE
     Route: 042
     Dates: end: 20180808
  4. RITUXIMAB. [Suspect]
     Active Substance: RITUXIMAB
     Route: 041
     Dates: end: 20180808

REACTIONS (2)
  - Hepatic function abnormal [Recovered/Resolved]
  - Prescribed underdose [Unknown]

NARRATIVE: CASE EVENT DATE: 20180322
